FAERS Safety Report 16819548 (Version 1)
Quarter: 2019Q3

REPORT INFORMATION
  Report Type: Report from Study
  Country: US (occurrence: US)
  Receive Date: 20190917
  Receipt Date: 20190917
  Transmission Date: 20191005
  Serious: Yes (Hospitalization)
  Sender: FDA-Public Use
  Company Number: US-ACTELION-A-NJ2019-195268

PATIENT
  Age: 73 Year
  Sex: Female
  Weight: 57.14 kg

DRUGS (5)
  1. LETAIRIS [Concomitant]
     Active Substance: AMBRISENTAN
  2. UPTRAVI [Suspect]
     Active Substance: SELEXIPAG
     Dosage: 600 MCG, BID
     Route: 048
  3. UPTRAVI [Suspect]
     Active Substance: SELEXIPAG
     Indication: PULMONARY ARTERIAL HYPERTENSION
     Dosage: 400 MCG, BID
     Route: 048
  4. COUMADIN [Concomitant]
     Active Substance: WARFARIN SODIUM
  5. UPTRAVI [Suspect]
     Active Substance: SELEXIPAG
     Dosage: 1000 MCG
     Route: 048
     Dates: start: 20190828

REACTIONS (7)
  - Respiratory failure [Unknown]
  - Diarrhoea [Unknown]
  - Pneumonia [Unknown]
  - Feeling abnormal [Unknown]
  - Headache [Unknown]
  - Abdominal mass [Unknown]
  - Myalgia [Unknown]

NARRATIVE: CASE EVENT DATE: 20190828
